FAERS Safety Report 10045506 (Version 2)
Quarter: 2014Q2

REPORT INFORMATION
  Report Type: Spontaneous
  Country: US (occurrence: US)
  Receive Date: 20140328
  Receipt Date: 20140627
  Transmission Date: 20141212
  Serious: Yes (Hospitalization)
  Sender: FDA-Public Use
  Company Number: US-ASTRAZENECA-2013SE80468

PATIENT
  Age: 65 Year
  Sex: Female
  Weight: 86.2 kg

DRUGS (14)
  1. NEXIUM [Suspect]
     Indication: GASTRIC DISORDER
     Route: 048
     Dates: start: 2006
  2. NEXIUM [Suspect]
     Indication: GASTRIC DISORDER
     Route: 048
     Dates: start: 20060111
  3. PRILOSEC OTC [Suspect]
     Indication: GASTRIC DISORDER
     Route: 048
  4. PEPCID [Concomitant]
  5. TUMS [Concomitant]
  6. ROLAIDS [Concomitant]
  7. LISINOPRIL [Concomitant]
     Indication: BLOOD PRESSURE ABNORMAL
  8. HCTZ [Concomitant]
     Indication: DIURETIC THERAPY
  9. HYDROCODONE [Concomitant]
     Dates: start: 20120112
  10. CENTRUM SILVER [Concomitant]
  11. LORTAB [Concomitant]
     Route: 048
     Dates: start: 20121216
  12. CEFDINIR [Concomitant]
     Route: 048
     Dates: start: 20111205
  13. CELEBREX [Concomitant]
     Route: 048
     Dates: start: 20120625
  14. TYLENOL CODEIN [Concomitant]
     Route: 048
     Dates: start: 20130121

REACTIONS (15)
  - Spinal fracture [Unknown]
  - Sternal fracture [Unknown]
  - Lumbar vertebral fracture [Unknown]
  - Cardiac disorder [Unknown]
  - Osteoporosis [Unknown]
  - Bone disorder [Unknown]
  - Thoracic vertebral fracture [Unknown]
  - Skin disorder [Unknown]
  - Fracture [Unknown]
  - Spinal disorder [Unknown]
  - Fall [Unknown]
  - Intervertebral disc degeneration [Unknown]
  - Lumbar radiculopathy [Unknown]
  - Depression [Unknown]
  - Facial bones fracture [Unknown]
